FAERS Safety Report 21076801 (Version 1)
Quarter: 2022Q3

REPORT INFORMATION
  Report Type: Report from Study
  Country: IL (occurrence: IL)
  Receive Date: 20220713
  Receipt Date: 20220713
  Transmission Date: 20221027
  Serious: Yes (Death, Hospitalization)
  Sender: FDA-Public Use
  Company Number: IL-JNJFOC-20220708507

PATIENT

DRUGS (1)
  1. HALDOL [Suspect]
     Active Substance: HALOPERIDOL
     Indication: Agitation
     Dosage: DOSE WAS EITHER 5MG (55%) OR 2.5MG (45%)
     Route: 030

REACTIONS (7)
  - Death [Fatal]
  - Ventricular tachycardia [Unknown]
  - Supraventricular tachycardia [Unknown]
  - Blood pressure fluctuation [Unknown]
  - Mechanical ventilation [Unknown]
  - Fall [Unknown]
  - Adverse event [Unknown]
